FAERS Safety Report 4552470-6 (Version None)
Quarter: 2005Q1

REPORT INFORMATION
  Report Type: 
  Country: None (occurrence: None)
  Receive Date: 20050114
  Receipt Date: 20041026
  Transmission Date: 20050727
  Serious: No
  Sender: FDA-Public Use
  Company Number: US-BRISTOL-MYERS SQUIBB COMPANY-12746913

PATIENT
  Age: 32 Year
  Sex: Female
  Weight: 64 kg

DRUGS (8)
  1. PLATINOL [Suspect]
     Indication: CERVIX CARCINOMA
     Route: 042
     Dates: start: 20040907, end: 20040929
  2. RADIATION THERAPY [Concomitant]
  3. ALOXI [Concomitant]
     Indication: PREMEDICATION
  4. DECADRON [Concomitant]
     Indication: PREMEDICATION
  5. CENESTIN [Concomitant]
  6. LOMOTIL [Concomitant]
  7. COMPAZINE [Concomitant]
  8. AMBIEN [Concomitant]

REACTIONS (1)
  - ALOPECIA [None]
